FAERS Safety Report 23303650 (Version 4)
Quarter: 2024Q2

REPORT INFORMATION
  Report Type: Spontaneous
  Country: US (occurrence: US)
  Receive Date: 20231215
  Receipt Date: 20240503
  Transmission Date: 20240716
  Serious: Yes (Death, Hospitalization, Other)
  Sender: FDA-Public Use
  Company Number: US-PFIZER INC-PV202300202990

PATIENT
  Age: 95 Year
  Sex: Male

DRUGS (1)
  1. VYNDAMAX [Suspect]
     Active Substance: TAFAMIDIS
     Indication: Amyloidosis
     Dosage: 61 MG, 1X/DAY
     Route: 048
     Dates: start: 2021

REACTIONS (7)
  - Death [Fatal]
  - Condition aggravated [Unknown]
  - COVID-19 [Unknown]
  - Unresponsive to stimuli [Unknown]
  - Gait disturbance [Unknown]
  - Confusional state [Unknown]
  - Eating disorder [Unknown]

NARRATIVE: CASE EVENT DATE: 20240101
